FAERS Safety Report 23758639 (Version 1)
Quarter: 2024Q2

REPORT INFORMATION
  Report Type: Spontaneous
  Country: US (occurrence: None)
  Receive Date: 20240418
  Receipt Date: 20240418
  Transmission Date: 20240716
  Serious: No
  Sender: FDA-Public Use
  Company Number: US-ROCHE-3307050

PATIENT

DRUGS (1)
  1. AVASTIN [Suspect]
     Active Substance: BEVACIZUMAB
     Indication: Malignant neoplasm of choroid
     Route: 050

REACTIONS (4)
  - Off label use [Unknown]
  - Off label use [Unknown]
  - Off label use [Unknown]
  - No adverse event [Unknown]
